FAERS Safety Report 9921411 (Version 1)
Quarter: 2014Q1

REPORT INFORMATION
  Report Type: Spontaneous
  Country: US (occurrence: None)
  Receive Date: 20140221
  Receipt Date: 20140221
  Transmission Date: 20141002
  Serious: Yes (Other)
  Sender: FDA-Public Use
  Company Number: None

PATIENT
  Age: 61 Year
  Sex: Male

DRUGS (3)
  1. RIBAVIRIN [Suspect]
     Indication: HEPATITIS C
     Dosage: 3 TABLETS BID BY MOUTH
     Route: 048
     Dates: start: 201303, end: 201402
  2. VICTRELIS [Suspect]
     Indication: HEPATITIS C
     Dosage: 4 CAPSULES TID BY MOUTH
     Route: 048
     Dates: start: 201303, end: 201402
  3. PEGASYS [Concomitant]

REACTIONS (1)
  - Hepatic cancer [None]
